FAERS Safety Report 12074001 (Version 1)
Quarter: 2016Q1

REPORT INFORMATION
  Report Type: Report from Study
  Country: US (occurrence: US)
  Receive Date: 20160212
  Receipt Date: 20160212
  Transmission Date: 20160526
  Serious: Yes (Hospitalization, Other)
  Sender: FDA-Public Use
  Company Number: US-BAYER-2016-006226

PATIENT
  Age: 58 Year
  Sex: Male

DRUGS (2)
  1. NEXAVAR [Suspect]
     Active Substance: SORAFENIB
     Indication: HEPATOCELLULAR CARCINOMA
     Dosage: 200 MG, QD
     Route: 048
     Dates: start: 20160104, end: 20160104
  2. NEXAVAR [Suspect]
     Active Substance: SORAFENIB
     Indication: HEPATOCELLULAR CARCINOMA
     Dosage: 400 MG, BID
     Route: 048
     Dates: start: 20151224, end: 20151229

REACTIONS (8)
  - Poor quality sleep [None]
  - Hepatitis C [None]
  - Adverse drug reaction [None]
  - Feeling abnormal [None]
  - Pyrexia [Recovering/Resolving]
  - Delirium [None]
  - Infection [None]
  - Diarrhoea [None]

NARRATIVE: CASE EVENT DATE: 201512
